FAERS Safety Report 25705134 (Version 2)
Quarter: 2025Q4

REPORT INFORMATION
  Report Type: Report from Study
  Country: US (occurrence: US)
  Receive Date: 20250820
  Receipt Date: 20251111
  Transmission Date: 20260119
  Serious: Yes (Other)
  Sender: ACADIA PHARMACEUTICALS
  Company Number: US-ACADIA PHARMACEUTICALS INC.-ACA-2025-TRF-009309

PATIENT
  Sex: Female

DRUGS (1)
  1. DAYBUE [Suspect]
     Active Substance: TROFINETIDE
     Indication: Rett syndrome
     Dosage: 50 MILLILITER, BID

REACTIONS (5)
  - Seizure [Not Recovered/Not Resolved]
  - Diarrhoea [Not Recovered/Not Resolved]
  - Lethargy [Not Recovered/Not Resolved]
  - Vomiting [Not Recovered/Not Resolved]
  - Fatigue [Not Recovered/Not Resolved]
